FAERS Safety Report 9126702 (Version 1)
Quarter: 2013Q1

REPORT INFORMATION
  Report Type: Spontaneous
  Country: US (occurrence: US)
  Receive Date: 20130228
  Receipt Date: 20130228
  Transmission Date: 20140127
  Serious: No
  Sender: FDA-Public Use
  Company Number: US-ELI_LILLY_AND_COMPANY-US201302006934

PATIENT
  Sex: Male

DRUGS (1)
  1. CIALIS [Suspect]
     Indication: ERECTILE DYSFUNCTION
     Dosage: 20 MG, UNKNOWN
     Dates: start: 2011

REACTIONS (6)
  - Vision blurred [Unknown]
  - Headache [Unknown]
  - Hyperhidrosis [Unknown]
  - Drug ineffective [Unknown]
  - Intentional drug misuse [Unknown]
  - Suspected counterfeit product [Unknown]
